FAERS Safety Report 13972670 (Version 1)
Quarter: 2017Q3

REPORT INFORMATION
  Report Type: Spontaneous
  Country: FR (occurrence: FR)
  Receive Date: 20170914
  Receipt Date: 20170914
  Transmission Date: 20171128
  Serious: Yes (Other)
  Sender: FDA-Public Use
  Company Number: PHHY2017FR133966

PATIENT
  Age: 41 Year
  Sex: Male

DRUGS (2)
  1. NIFLURIL [Suspect]
     Active Substance: MORNIFLUMATE
     Dosage: 1 DF, BID
     Route: 054
     Dates: start: 20170209
  2. OFLOXACIN SANDOZ [Suspect]
     Active Substance: OFLOXACIN
     Indication: PROSTATITIS
     Dosage: 200 MG, BID
     Route: 048
     Dates: start: 20170211, end: 20170220

REACTIONS (13)
  - Neuropathy peripheral [Not Recovered/Not Resolved]
  - Vision blurred [Not Recovered/Not Resolved]
  - Insomnia [Not Recovered/Not Resolved]
  - Depersonalisation/derealisation disorder [Not Recovered/Not Resolved]
  - Rash [Not Recovered/Not Resolved]
  - Fatigue [Not Recovered/Not Resolved]
  - Vertigo [Not Recovered/Not Resolved]
  - Mental disorder [Not Recovered/Not Resolved]
  - Feeling abnormal [Not Recovered/Not Resolved]
  - Photosensitivity reaction [Not Recovered/Not Resolved]
  - Vitreous floaters [Not Recovered/Not Resolved]
  - Depression [Not Recovered/Not Resolved]
  - Tremor [Not Recovered/Not Resolved]

NARRATIVE: CASE EVENT DATE: 20170224
